FAERS Safety Report 5921345-X (Version None)
Quarter: 2008Q4

REPORT INFORMATION
  Report Type: 
  Country: None (occurrence: None)
  Receive Date: 20081014
  Receipt Date: 20080928
  Transmission Date: 20090506
  Serious: Yes (Other)
  Sender: FDA-Public Use
  Company Number: 8037713

PATIENT
  Age: 67 Year
  Sex: Female

DRUGS (8)
  1. KEPPRA [Suspect]
     Dosage: 6000 MG ONCE PO
     Route: 048
     Dates: start: 20080928, end: 20080928
  2. EDRONAX / 01350601/ [Suspect]
     Dosage: 24 MG ONCE PO
     Route: 048
     Dates: start: 20080928, end: 20080928
  3. ESIDRIX [Suspect]
     Dosage: 75 MG ONCE PO
     Route: 048
     Dates: start: 20080928, end: 20080928
  4. MELPERON [Suspect]
     Dosage: 225 MG ONCE PO
     Route: 048
     Dates: start: 20080928, end: 20080928
  5. METOPROLOL TARTRATE [Suspect]
     Dosage: 600 MG ONCE PO
     Route: 048
     Dates: start: 20080928, end: 20080928
  6. MIRTAZAPINE [Suspect]
     Dosage: 135 MG ONCE PO
     Route: 048
     Dates: start: 20080928, end: 20080928
  7. RAMIPRIL [Suspect]
     Dosage: 15 MG ONCE PO
     Route: 048
     Dates: start: 20080928, end: 20080928
  8. VALPROIC ACID [Suspect]
     Dosage: 3000 MG ONCE PO
     Route: 048
     Dates: start: 20080928, end: 20080928

REACTIONS (4)
  - ACCIDENTAL EXPOSURE [None]
  - BLOOD PRESSURE SYSTOLIC DECREASED [None]
  - HYPOTONIA [None]
  - SOMNOLENCE [None]
